FAERS Safety Report 13978777 (Version 2)
Quarter: 2017Q4

REPORT INFORMATION
  Report Type: Spontaneous
  Country: FR (occurrence: FR)
  Receive Date: 20170915
  Receipt Date: 20171025
  Transmission Date: 20180321
  Serious: Yes (Hospitalization)
  Sender: FDA-Public Use
  Company Number: FR-MERCK KGAA-2026481

PATIENT
  Sex: Female

DRUGS (8)
  1. TRAMADOL. [Concomitant]
     Active Substance: TRAMADOL
     Route: 065
  2. NOVOTHYROX [Suspect]
     Active Substance: LEVOTHYROXINE SODIUM
     Route: 065
     Dates: start: 201704, end: 201704
  3. FLECAINE [Concomitant]
     Active Substance: FLECAINIDE
     Route: 065
  4. VENTOLINE [Concomitant]
     Active Substance: ALBUTEROL
     Route: 065
  5. COUMADINE [Concomitant]
     Active Substance: WARFARIN SODIUM
     Route: 065
  6. NOVOTHYROX [Suspect]
     Active Substance: LEVOTHYROXINE SODIUM
     Indication: THYROID CANCER
     Route: 065
     Dates: start: 2007, end: 201704
  7. AERIUS [Concomitant]
     Active Substance: DESLORATADINE
     Route: 065
  8. INNOVAIR [Concomitant]
     Active Substance: BECLOMETHASONE DIPROPIONATE\FORMOTEROL
     Route: 065

REACTIONS (1)
  - Cardiac disorder [Unknown]
